FAERS Safety Report 10052920 (Version 4)
Quarter: 2014Q2

REPORT INFORMATION
  Report Type: Spontaneous
  Country: US (occurrence: US)
  Receive Date: 20140402
  Receipt Date: 20140627
  Transmission Date: 20141212
  Serious: Yes (Death, Hospitalization, Other)
  Sender: FDA-Public Use
  Company Number: US-PFIZER INC-2014089195

PATIENT
  Age: 46 Year
  Sex: Male
  Weight: 71.66 kg

DRUGS (2)
  1. XYNTHA [Suspect]
     Indication: FACTOR VIII DEFICIENCY
     Dosage: 3000 IU PER DAY, AS NEEDED
     Route: 042
     Dates: start: 20111004
  2. TYLENOL W/CODEINE NO. 3 [Concomitant]
     Indication: PAIN
     Dosage: UNK, 2X/DAY

REACTIONS (3)
  - Disease complication [Fatal]
  - Femur fracture [Recovering/Resolving]
  - Fall [Unknown]
